FAERS Safety Report 10730928 (Version 1)
Quarter: 2015Q1

REPORT INFORMATION
  Report Type: Report from Study
  Country: US (occurrence: US)
  Receive Date: 20150122
  Receipt Date: 20150122
  Transmission Date: 20150721
  Serious: Yes (Other)
  Sender: FDA-Public Use
  Company Number: US-BAYER-2014-162506

PATIENT
  Age: 72 Year
  Sex: Female

DRUGS (2)
  1. NEXAVAR [Suspect]
     Active Substance: SORAFENIB
     Indication: HEPATIC CANCER
     Dosage: 200 MG, QD
     Route: 048
     Dates: start: 2014, end: 20150112
  2. NEXAVAR [Suspect]
     Active Substance: SORAFENIB
     Indication: HEPATIC CANCER
     Dosage: 200 MG, BID
     Dates: start: 20140922, end: 2014

REACTIONS (5)
  - Hepatic cancer [Recovered/Resolved]
  - Blister infected [Recovered/Resolved]
  - Inappropriate schedule of drug administration [None]
  - Drug ineffective [None]
  - Rash [Not Recovered/Not Resolved]

NARRATIVE: CASE EVENT DATE: 201411
